FAERS Safety Report 5919951-1 (Version None)
Quarter: 2008Q3

REPORT INFORMATION
  Report Type: 
  Country: None (occurrence: None)
  Receive Date: 20080909
  Receipt Date: 20070828
  Transmission Date: 20090109
  Serious: Yes (Death)
  Sender: FDA-Public Use
  Company Number: 163-20785-07070251

PATIENT
  Age: 84 Year
  Sex: Female

DRUGS (2)
  1. THALOMID [Suspect]
     Indication: MULTIPLE MYELOMA
     Dosage: 200 MG, 4 IN 1 D, ORAL ; 50-400MG, DAILY, ORAL
     Route: 048
     Dates: start: 20060511, end: 20061001
  2. THALOMID [Suspect]
     Indication: MULTIPLE MYELOMA
     Dosage: 200 MG, 4 IN 1 D, ORAL ; 50-400MG, DAILY, ORAL
     Route: 048
     Dates: start: 20061109, end: 20070601

REACTIONS (1)
  - CEREBROVASCULAR ACCIDENT [None]
